FAERS Safety Report 5564165-0 (Version None)
Quarter: 2007Q4

REPORT INFORMATION
  Report Type: 
  Country: None (occurrence: None)
  Receive Date: 20071217
  Receipt Date: 20071205
  Transmission Date: 20080405
  Serious: Yes (Other)
  Sender: FDA-Public Use
  Company Number: DE-PFIZER INC-2007104606

PATIENT
  Sex: Female
  Weight: 65 kg

DRUGS (3)
  1. LYRICA [Suspect]
     Indication: ANXIETY
     Route: 048
  2. QUETIAPINE [Concomitant]
     Dosage: DAILY DOSE:400MG
  3. PAROXETIN [Concomitant]
     Dosage: DAILY DOSE:40MG

REACTIONS (1)
  - DRUG DEPENDENCE [None]
